FAERS Safety Report 12152829 (Version 2)
Quarter: 2016Q2

REPORT INFORMATION
  Report Type: Report from Study
  Country: JP (occurrence: JP)
  Receive Date: 20160304
  Receipt Date: 20160411
  Transmission Date: 20160815
  Serious: Yes (Other)
  Sender: FDA-Public Use
  Company Number: JP-ASTRAZENECA-2016SE23540

PATIENT
  Age: 25886 Day
  Sex: Male
  Weight: 60.7 kg

DRUGS (4)
  1. VOGLIBOSE [Concomitant]
     Active Substance: VOGLIBOSE
     Indication: TYPE 2 DIABETES MELLITUS
     Route: 048
  2. ONGLYZA [Suspect]
     Active Substance: SAXAGLIPTIN HYDROCHLORIDE
     Indication: TYPE 2 DIABETES MELLITUS
     Route: 048
     Dates: start: 20140715, end: 20151027
  3. MICAMLO [Concomitant]
     Active Substance: AMLODIPINE BESYLATE\TELMISARTAN
     Indication: HYPERTENSION
     Route: 048
  4. GLUFAST [Concomitant]
     Active Substance: MITIGLINIDE
     Indication: TYPE 2 DIABETES MELLITUS
     Route: 048

REACTIONS (6)
  - White blood cell count decreased [Recovering/Resolving]
  - Gastrointestinal haemorrhage [Recovering/Resolving]
  - Faeces discoloured [Recovered/Resolved]
  - Diarrhoea [Recovered/Resolved]
  - Red blood cell count decreased [Recovered/Resolved]
  - Haemoglobin decreased [Recovered/Resolved]

NARRATIVE: CASE EVENT DATE: 20150314
